FAERS Safety Report 19757650 (Version 1)
Quarter: 2021Q3

REPORT INFORMATION
  Report Type: Spontaneous
  Country: US (occurrence: US)
  Receive Date: 20210827
  Receipt Date: 20210827
  Transmission Date: 20211014
  Serious: Yes (Other)
  Sender: FDA-Public Use
  Company Number: US-GLAXOSMITHKLINE-US2021GSK179427

PATIENT
  Sex: Male

DRUGS (4)
  1. RANITIDINE CAPSULE [Suspect]
     Active Substance: RANITIDINE
     Indication: GOUT
     Dosage: UNK UNK, QD
     Route: 065
     Dates: start: 200501, end: 201512
  2. RANITIDINE. [Suspect]
     Active Substance: RANITIDINE
     Indication: GOUT
     Dosage: 75 MG, QD
     Route: 065
     Dates: start: 200501, end: 201212
  3. RANITIDINE. [Suspect]
     Active Substance: RANITIDINE
     Indication: GOUT
     Dosage: 75 MG, QD
     Route: 065
     Dates: start: 200501, end: 201212
  4. ZANTAC [Suspect]
     Active Substance: RANITIDINE HYDROCHLORIDE
     Indication: GOUT
     Dosage: UNK UNK, QD
     Route: 065
     Dates: start: 200501, end: 201512

REACTIONS (1)
  - Colorectal cancer [Unknown]
